FAERS Safety Report 9292118 (Version 1)
Quarter: 2013Q1

REPORT INFORMATION
  Report Type: Spontaneous
  Country: US (occurrence: None)
  Receive Date: 20121214
  Receipt Date: 20121214
  Transmission Date: 20140127
  Serious: Yes (Life-Threatening, Hospitalization, Other)
  Sender: FDA-Public Use
  Company Number: 1111USA02733

PATIENT
  Age: 44 Year
  Sex: Female
  Weight: 127 kg

DRUGS (12)
  1. JANUVIA [Suspect]
     Indication: DIABETES MELLITUS
     Route: 048
     Dates: start: 20111027, end: 20111118
  2. SIMVASTATIN (SIMVASTATIN) TABLET [Concomitant]
  3. MK-9378 (METFORMIN) TABLET [Concomitant]
  4. METOPROLOL (METOPROLOL) [Concomitant]
  5. PRILOSEC (OMEPREAZOLE) CAPSULE [Concomitant]
  6. EFFEXOR (VENLAFAXINE HYDROCHLORIDE) TABLET [Concomitant]
  7. LOSARTAN POTASSIUM TABLETS (LOSARTAN POTASSIUM) POWDER [Concomitant]
  8. MK-0745 (METOCLOPRAMIDE) TABLET [Concomitant]
  9. MK-9420 (OMEPRAZOLE MAGNESIUM) [Concomitant]
  10. ZOCOR (SIMVASTATIN) TABLET [Concomitant]
  11. LYRICA (PREGABALIN) TABLET [Concomitant]
  12. ASPIRIN (ASPIRIN) [Concomitant]

REACTIONS (1)
  - Anaphylactic reaction [None]
